FAERS Safety Report 8167521-X (Version None)
Quarter: 2012Q1

REPORT INFORMATION
  Report Type: 
  Country: None (occurrence: None)
  Receive Date: 20120227
  Receipt Date: 20120223
  Transmission Date: 20120608
  Serious: Yes (Hospitalization, Other)
  Sender: FDA-Public Use
  Company Number: AU-ROCHE-1040481

PATIENT
  Sex: Female

DRUGS (3)
  1. LUCENTIS [Suspect]
     Indication: AGE-RELATED MACULAR DEGENERATION
     Route: 050
     Dates: start: 20110915, end: 20110915
  2. LIPITOR [Concomitant]
  3. LUCENTIS [Suspect]
     Dates: start: 20110915

REACTIONS (1)
  - STRESS CARDIOMYOPATHY [None]
